FAERS Safety Report 20935800 (Version 1)
Quarter: 2022Q2

REPORT INFORMATION
  Report Type: Spontaneous
  Country: US (occurrence: None)
  Receive Date: 20220609
  Receipt Date: 20220609
  Transmission Date: 20220721
  Serious: No
  Sender: FDA-Public Use
  Company Number: US-ROCHE-2823503

PATIENT
  Sex: Female

DRUGS (20)
  1. ACTEMRA [Suspect]
     Active Substance: TOCILIZUMAB
     Indication: Product used for unknown indication
     Dosage: DOSAGE STRENGTH: 162 MG/0.9 ML
     Route: 058
  2. ACTEMRA [Suspect]
     Active Substance: TOCILIZUMAB
  3. ACTEMRA [Suspect]
     Active Substance: TOCILIZUMAB
  4. ALPRAZOLAM [Concomitant]
     Active Substance: ALPRAZOLAM
  5. CARAFATE [Concomitant]
     Active Substance: SUCRALFATE
  6. DORZOLAMIDE [Concomitant]
     Active Substance: DORZOLAMIDE
  7. FOLIC ACID [Concomitant]
     Active Substance: FOLIC ACID
     Dosage: 800 MCG
  8. METHOTREXATE [Concomitant]
     Active Substance: METHOTREXATE
     Dosage: 250MG/10
  9. PREDNISONE [Concomitant]
     Active Substance: PREDNISONE
  10. PROLENSA [Concomitant]
     Active Substance: BROMFENAC SODIUM
  11. ERGOCALCIFEROL [Concomitant]
     Active Substance: ERGOCALCIFEROL
     Dosage: 50 MCG/2000
  12. APAP;CODEINE [Concomitant]
     Dosage: 300-30 MG
  13. ATORVASTATIN [Concomitant]
     Active Substance: ATORVASTATIN
  14. DIGOX [Concomitant]
     Active Substance: DIGOXIN
  15. NALAPRIL [Concomitant]
  16. ESCITALOPRAM [Concomitant]
     Active Substance: ESCITALOPRAM OXALATE
  17. FUROSEMIDE [Concomitant]
     Active Substance: FUROSEMIDE
  18. METOPROLOL [Concomitant]
     Active Substance: METOPROLOL
     Dosage: METOPROLOL TAR
  19. OMEPRAZOLE [Concomitant]
     Active Substance: OMEPRAZOLE
  20. SIMVASTATIN [Concomitant]
     Active Substance: SIMVASTATIN

REACTIONS (4)
  - Joint swelling [Not Recovered/Not Resolved]
  - Burning sensation [Not Recovered/Not Resolved]
  - Pruritus [Not Recovered/Not Resolved]
  - Pain [Not Recovered/Not Resolved]
